FAERS Safety Report 25016810 (Version 1)
Quarter: 2025Q1

REPORT INFORMATION
  Report Type: Spontaneous
  Country: US (occurrence: US)
  Receive Date: 20250227
  Receipt Date: 20250227
  Transmission Date: 20250408
  Serious: No
  Sender: UCB
  Company Number: US-UCBSA-2024026912

PATIENT
  Age: 3 Year
  Sex: Female

DRUGS (17)
  1. LEVETIRACETAM [Suspect]
     Active Substance: LEVETIRACETAM
     Indication: Partial seizures
  2. LEVETIRACETAM [Suspect]
     Active Substance: LEVETIRACETAM
     Indication: Myoclonic epilepsy
  3. LEVETIRACETAM [Suspect]
     Active Substance: LEVETIRACETAM
     Indication: Congenital disorder of glycosylation
  4. LEVETIRACETAM [Suspect]
     Active Substance: LEVETIRACETAM
     Indication: Gene mutation
  5. LEVETIRACETAM [Suspect]
     Active Substance: LEVETIRACETAM
     Indication: Off label use
  6. CANNABIDIOL [Concomitant]
     Active Substance: CANNABIDIOL
     Indication: Partial seizures
  7. CANNABIDIOL [Concomitant]
     Active Substance: CANNABIDIOL
     Indication: Myoclonic epilepsy
  8. CANNABIDIOL [Concomitant]
     Active Substance: CANNABIDIOL
     Indication: Congenital disorder of glycosylation
  9. CANNABIDIOL [Concomitant]
     Active Substance: CANNABIDIOL
     Indication: Gene mutation
  10. CLONAZEPAM [Concomitant]
     Active Substance: CLONAZEPAM
     Indication: Partial seizures
  11. CLONAZEPAM [Concomitant]
     Active Substance: CLONAZEPAM
     Indication: Myoclonic epilepsy
  12. CLONAZEPAM [Concomitant]
     Active Substance: CLONAZEPAM
     Indication: Congenital disorder of glycosylation
  13. CLONAZEPAM [Concomitant]
     Active Substance: CLONAZEPAM
     Indication: Gene mutation
  14. ZONISAMIDE [Concomitant]
     Active Substance: ZONISAMIDE
     Indication: Partial seizures
  15. ZONISAMIDE [Concomitant]
     Active Substance: ZONISAMIDE
     Indication: Myoclonic epilepsy
  16. ZONISAMIDE [Concomitant]
     Active Substance: ZONISAMIDE
     Indication: Congenital disorder of glycosylation
  17. ZONISAMIDE [Concomitant]
     Active Substance: ZONISAMIDE
     Indication: Gene mutation

REACTIONS (1)
  - No adverse event [Unknown]
